FAERS Safety Report 4533020-7 (Version None)
Quarter: 2004Q4

REPORT INFORMATION
  Report Type: 
  Country: None (occurrence: None)
  Receive Date: 20041221
  Receipt Date: 20041213
  Transmission Date: 20050328
  Serious: Yes (Other)
  Sender: FDA-Public Use
  Company Number: KR-BRISTOL-MYERS SQUIBB COMPANY-12794004

PATIENT
  Age: 62 Year
  Sex: Female

DRUGS (3)
  1. CISPLATIN [Suspect]
     Indication: LUNG ADENOCARCINOMA
     Route: 042
     Dates: start: 19850213
  2. ETOPOSIDE [Suspect]
     Indication: LUNG ADENOCARCINOMA
     Route: 042
     Dates: start: 19850213
  3. FLUOROURACIL [Suspect]
     Indication: LUNG ADENOCARCINOMA
     Route: 042
     Dates: start: 19850213

REACTIONS (3)
  - ELECTROCARDIOGRAM ST SEGMENT ELEVATION [None]
  - ELECTROCARDIOGRAM T WAVE INVERSION [None]
  - TACHYCARDIA [None]
